FAERS Safety Report 18003985 (Version 1)
Quarter: 2020Q3

REPORT INFORMATION
  Report Type: Spontaneous
  Country: US (occurrence: US)
  Receive Date: 20200709
  Receipt Date: 20200709
  Transmission Date: 20201103
  Serious: No
  Sender: FDA-Public Use
  Company Number: US-ASTELLAS-2020US013445

PATIENT
  Sex: Female

DRUGS (3)
  1. OXYBUTYNIN. [Concomitant]
     Active Substance: OXYBUTYNIN CHLORIDE
     Indication: PRODUCT USED FOR UNKNOWN INDICATION
     Route: 065
  2. MYRBETRIQ [Suspect]
     Active Substance: MIRABEGRON
     Indication: PRODUCT USED FOR UNKNOWN INDICATION
     Route: 065
     Dates: start: 201908
  3. MYRBETRIQ [Suspect]
     Active Substance: MIRABEGRON
     Route: 065

REACTIONS (6)
  - Rhinorrhoea [Unknown]
  - Urinary incontinence [Not Recovered/Not Resolved]
  - Alopecia [Unknown]
  - Sinus disorder [Unknown]
  - Dry mouth [Unknown]
  - Drug ineffective [Unknown]
